FAERS Safety Report 6235857-5 (Version None)
Quarter: 2009Q2

REPORT INFORMATION
  Report Type: 
  Country: None (occurrence: None)
  Receive Date: 20090619
  Receipt Date: 20090610
  Transmission Date: 20091009
  Serious: Yes (Other)
  Sender: FDA-Public Use
  Company Number: CH-JNJFOC-20090506731

PATIENT
  Age: 32 Year
  Sex: Female
  Weight: 53 kg

DRUGS (7)
  1. REMICADE [Suspect]
     Route: 042
  2. REMICADE [Suspect]
     Route: 042
  3. REMICADE [Suspect]
     Route: 042
  4. REMICADE [Suspect]
     Route: 042
  5. REMICADE [Suspect]
     Indication: CROHN'S DISEASE
     Dosage: PRIOR TO OCT-2007
     Route: 042
  6. SOLU-CORTEF [Concomitant]
     Indication: PREMEDICATION
     Route: 042
  7. TRAMADOL HCL [Concomitant]

REACTIONS (12)
  - ABDOMINAL NEOPLASM [None]
  - ABDOMINAL PAIN [None]
  - ANAL ABSCESS [None]
  - ANAL FISTULA [None]
  - CARDIAC MURMUR [None]
  - COLONIC POLYP [None]
  - CORNEAL EROSION [None]
  - CROHN'S DISEASE [None]
  - ILEAL STENOSIS [None]
  - OEDEMA PERIPHERAL [None]
  - OPTIC NEURITIS [None]
  - PSORIASIS [None]
